FAERS Safety Report 5286022-X (Version None)
Quarter: 2007Q1

REPORT INFORMATION
  Report Type: 
  Country: None (occurrence: None)
  Receive Date: 20070329
  Receipt Date: 20070314
  Transmission Date: 20070707
  Serious: No
  Sender: FDA-Public Use
  Company Number: US019609

PATIENT
  Sex: Female

DRUGS (2)
  1. FENTORA [Suspect]
     Indication: BACK PAIN
     Dosage: 400 UG UNK BUCCAL
     Route: 002
  2. PERCOCET [Concomitant]

REACTIONS (1)
  - DRUG DISPENSING ERROR [None]
